FAERS Safety Report 4877988-8 (Version None)
Quarter: 2005Q4

REPORT INFORMATION
  Report Type: 
  Country: None (occurrence: None)
  Receive Date: 20051206
  Receipt Date: 20050907
  Transmission Date: 20060501
  Serious: No
  Sender: FDA-Public Use
  Company Number: USA0509107540

PATIENT
  Age: 44 Year
  Sex: Male

DRUGS (6)
  1. CYMBALTA [Suspect]
     Dosage: 30 MG DAY
  2. PROZAC [Suspect]
  3. DETROL LA [Concomitant]
  4. ARICEPT [Concomitant]
  5. NEXIUM [Concomitant]
  6. ALLEGRA [Concomitant]

REACTIONS (3)
  - ABNORMAL BEHAVIOUR [None]
  - MANIA [None]
  - RESTLESSNESS [None]
